FAERS Safety Report 7280902-1 (Version None)
Quarter: 2011Q1

REPORT INFORMATION
  Report Type: 
  Country: None (occurrence: None)
  Receive Date: 20110203
  Receipt Date: 20110203
  Transmission Date: 20110831
  Serious: Yes (Other)
  Sender: FDA-Public Use
  Company Number: None

PATIENT
  Sex: Female
  Weight: 68.9467 kg

DRUGS (2)
  1. MUCINEX D [Suspect]
     Dosage: 2 TABLETS 1 TIME PO; 1 TABLET 1 TIME PO
     Route: 048
     Dates: start: 20100301, end: 20101128
  2. MUCINEX D [Suspect]
     Dosage: 2 TABLETS 1 TIME PO; 1 TABLET 1 TIME PO
     Route: 048
     Dates: start: 20110125, end: 20110125

REACTIONS (4)
  - PALPITATIONS [None]
  - FEELING JITTERY [None]
  - INSOMNIA [None]
  - DIZZINESS [None]
